FAERS Safety Report 21879781 (Version 2)
Quarter: 2023Q1

REPORT INFORMATION
  Report Type: Spontaneous
  Country: FR (occurrence: FR)
  Receive Date: 20230118
  Receipt Date: 20230126
  Transmission Date: 20230418
  Serious: Yes (Death, Hospitalization, Other)
  Sender: FDA-Public Use
  Company Number: FR-BIOVITRUM-2023FR00691

PATIENT
  Age: 31 Year
  Sex: Female

DRUGS (1)
  1. ANAKINRA [Suspect]
     Active Substance: ANAKINRA
     Indication: Still^s disease

REACTIONS (3)
  - Multiple organ dysfunction syndrome [Fatal]
  - Pulmonary arterial hypertension [Unknown]
  - Haemophagocytic lymphohistiocytosis [Unknown]
